FAERS Safety Report 4492264-3 (Version None)
Quarter: 2004Q4

REPORT INFORMATION
  Report Type: 
  Country: None (occurrence: None)
  Receive Date: 20041103
  Receipt Date: 20041025
  Transmission Date: 20050328
  Serious: Yes (Hospitalization)
  Sender: FDA-Public Use
  Company Number: US-MERCK-0410USA03671

PATIENT
  Age: 75 Year
  Sex: Male

DRUGS (3)
  1. VIOXX [Suspect]
     Indication: ARTHRITIS
     Route: 048
     Dates: start: 20030101, end: 20040617
  2. NORVASC [Concomitant]
     Route: 065
  3. ATENOLOL [Concomitant]
     Route: 065

REACTIONS (1)
  - CHEST PAIN [None]
